FAERS Safety Report 17936124 (Version 1)
Quarter: 2020Q2

REPORT INFORMATION
  Report Type: Spontaneous
  Country: US (occurrence: US)
  Receive Date: 20200624
  Receipt Date: 20200624
  Transmission Date: 20200714
  Serious: Yes (Hospitalization)
  Sender: FDA-Public Use
  Company Number: None

PATIENT
  Age: 56 Year
  Sex: Female

DRUGS (7)
  1. GALAFOLD [Suspect]
     Active Substance: MIGALASTAT HYDROCHLORIDE
     Indication: POLYNEUROPATHY
     Dosage: ?          OTHER FREQUENCY:EVERY OTHER DAY;?
     Route: 048
  2. HYDROCHLOROTHIAZIDE. [Concomitant]
     Active Substance: HYDROCHLOROTHIAZIDE
  3. TRAZODONE [Concomitant]
     Active Substance: TRAZODONE HYDROCHLORIDE
  4. METOPROLOL. [Concomitant]
     Active Substance: METOPROLOL
  5. TRAMADOL. [Concomitant]
     Active Substance: TRAMADOL
  6. ATORVASTATIN [Concomitant]
     Active Substance: ATORVASTATIN
  7. VENLAFAXINE [Concomitant]
     Active Substance: VENLAFAXINE HYDROCHLORIDE

REACTIONS (2)
  - Pain [None]
  - Therapy interrupted [None]

NARRATIVE: CASE EVENT DATE: 20200622
